FAERS Safety Report 19804794 (Version 1)
Quarter: 2021Q3

REPORT INFORMATION
  Report Type: Spontaneous
  Country: US (occurrence: US)
  Receive Date: 20210908
  Receipt Date: 20210908
  Transmission Date: 20211014
  Serious: Yes (Other)
  Sender: FDA-Public Use
  Company Number: US-PFIZER INC-202101137703

PATIENT
  Age: 82 Year
  Sex: Female

DRUGS (1)
  1. VFEND [Suspect]
     Active Substance: VORICONAZOLE
     Dosage: 200 MG, 2X/DAY (1 TABLET PO BID 1 HR BEFORE OR AFTER MEAL, 6 WEEK TREATMENT, QUENTITY 90)
     Route: 048

REACTIONS (1)
  - Bronchopulmonary aspergillosis [Unknown]
